FAERS Safety Report 20096319 (Version 1)
Quarter: 2021Q4

REPORT INFORMATION
  Report Type: Spontaneous
  Country: US (occurrence: None)
  Receive Date: 20211119
  Receipt Date: 20211119
  Transmission Date: 20220303
  Serious: Yes (Death)
  Sender: FDA-Public Use
  Company Number: None

PATIENT
  Age: 73 Year
  Sex: Male
  Weight: 106.6 kg

DRUGS (1)
  1. GADAVIST [Suspect]
     Active Substance: GADOBUTROL
     Dosage: FREQUENCY : ONCE;?
     Route: 040
     Dates: start: 20211020, end: 20211020

REACTIONS (4)
  - Vomiting [None]
  - Loss of consciousness [None]
  - Cardiac arrest [None]
  - Embolism [None]

NARRATIVE: CASE EVENT DATE: 20211020
